FAERS Safety Report 9934803 (Version 2)
Quarter: 2014Q1

REPORT INFORMATION
  Report Type: Spontaneous
  Country: FR (occurrence: FR)
  Receive Date: 20140228
  Receipt Date: 20140325
  Transmission Date: 20141002
  Serious: Yes (Life-Threatening, Hospitalization, Other)
  Sender: FDA-Public Use
  Company Number: FR-GLAXOSMITHKLINE-B0963076A

PATIENT
  Age: 67 Year
  Sex: Male
  Weight: 77 kg

DRUGS (6)
  1. ARIXTRA [Suspect]
     Indication: THROMBOSIS PROPHYLAXIS
     Dosage: 2.5MG PER DAY
     Route: 058
     Dates: start: 20131125, end: 20131204
  2. PARACETAMOL [Concomitant]
     Indication: PAIN
     Dosage: 1G FOUR TIMES PER DAY
     Route: 048
  3. SPASFON [Concomitant]
     Indication: PAIN
     Dosage: 2TAB THREE TIMES PER DAY
     Route: 048
  4. CREON 25000 [Concomitant]
     Indication: PANCREATIC INSUFFICIENCY
     Dosage: 25000U THREE TIMES PER DAY
     Route: 048
  5. URSOLVAN [Concomitant]
     Indication: LITHOTRIPSY
     Dosage: 1TAB AT NIGHT
     Route: 048
  6. TAREG [Concomitant]
     Dosage: 80MG IN THE MORNING
     Route: 048

REACTIONS (4)
  - Haemorrhage [Recovered/Resolved with Sequelae]
  - Peritoneal haemorrhage [Recovered/Resolved with Sequelae]
  - Abdominal pain [Recovered/Resolved with Sequelae]
  - Haematoma [Recovered/Resolved with Sequelae]
